FAERS Safety Report 6171925-4 (Version None)
Quarter: 2009Q2

REPORT INFORMATION
  Report Type: 
  Country: None (occurrence: None)
  Receive Date: 20090428
  Receipt Date: 20090428
  Transmission Date: 20091009
  Serious: Yes (Life-Threatening, Hospitalization, Disabling, Other)
  Sender: FDA-Public Use
  Company Number: None

PATIENT
  Age: 63 Year
  Sex: Female

DRUGS (9)
  1. INFLIXIMAB [Suspect]
     Indication: RHEUMATOID ARTHRITIS
     Dosage: INFLIXIMAB UNKNOWN IV
     Route: 042
     Dates: start: 20081103, end: 20081215
  2. NAPROSYN [Concomitant]
  3. PREDNISONE -STERAPRED- [Concomitant]
  4. MORPHINE SULFATE [Concomitant]
  5. METHOTREXATE -TREXALL- [Concomitant]
  6. BISACODYL -DULCOLAX- [Concomitant]
  7. REGLAN [Concomitant]
  8. ENBREL [Concomitant]
  9. RITUXAN [Concomitant]

REACTIONS (3)
  - INFECTION IN AN IMMUNOCOMPROMISED HOST [None]
  - PNEUMONIA [None]
  - SEPTIC SHOCK [None]
